FAERS Safety Report 8016203-3 (Version None)
Quarter: 2011Q4

REPORT INFORMATION
  Report Type: 
  Country: None (occurrence: None)
  Receive Date: 20111228
  Receipt Date: 20111228
  Transmission Date: 20120403
  Serious: Yes (Disabling)
  Sender: FDA-Public Use
  Company Number: None

PATIENT
  Age: 41 Year
  Sex: Female
  Weight: 63.5036 kg

DRUGS (2)
  1. SEASONIQUE [Suspect]
     Indication: UTERINE LEIOMYOMA
     Dates: start: 20090501, end: 20100601
  2. SEASONIQUE [Suspect]
     Indication: MENORRHAGIA
     Dates: start: 20090501, end: 20100601

REACTIONS (5)
  - VISUAL ACUITY REDUCED [None]
  - GLARE [None]
  - QUALITY OF LIFE DECREASED [None]
  - EYE DISORDER [None]
  - VISION BLURRED [None]
